FAERS Safety Report 23201291 (Version 1)
Quarter: 2023Q4

REPORT INFORMATION
  Report Type: Report from Study
  Country: US (occurrence: US)
  Receive Date: 20231118
  Receipt Date: 20231118
  Transmission Date: 20240109
  Serious: No
  Sender: FDA-Public Use
  Company Number: US-ALXN-A202311436

PATIENT
  Age: 9 Year
  Sex: Female

DRUGS (1)
  1. STRENSIQ [Suspect]
     Active Substance: ASFOTASE ALFA
     Indication: Hypophosphatasia
     Dosage: UNK
     Route: 065

REACTIONS (8)
  - Headache [Unknown]
  - Arthralgia [Unknown]
  - Musculoskeletal discomfort [Unknown]
  - Injection site swelling [Recovering/Resolving]
  - Injection site erythema [Unknown]
  - Injection site rash [Unknown]
  - Injection site pain [Not Recovered/Not Resolved]
  - Injection site bruising [Not Recovered/Not Resolved]

NARRATIVE: CASE EVENT DATE: 20230802
